FAERS Safety Report 5264238-6 (Version None)
Quarter: 2007Q1

REPORT INFORMATION
  Report Type: 
  Country: None (occurrence: None)
  Receive Date: 20070313
  Receipt Date: 20070301
  Transmission Date: 20070707
  Serious: Yes (Other)
  Sender: FDA-Public Use
  Company Number: GB-SANOFI-SYNTHELABO-A01200702261

PATIENT

DRUGS (2)
  1. NORADRENALINE [Concomitant]
     Indication: HYPOTENSION
     Dosage: UNK
     Route: 065
  2. PRIMACOR [Suspect]
     Indication: MYOCARDIAL INFARCTION
     Route: 042

REACTIONS (2)
  - HYPOTENSION [None]
  - RENAL IMPAIRMENT [None]
